FAERS Safety Report 12486098 (Version 2)
Quarter: 2019Q2

REPORT INFORMATION
  Report Type: Report from Study
  Country: CN (occurrence: CN)
  Receive Date: 20160621
  Receipt Date: 20190609
  Transmission Date: 20190711
  Serious: Yes (Death)
  Sender: FDA-Public Use
  Company Number: CN-TAKEDA-2016MPI005678

PATIENT
  Sex: Male

DRUGS (1)
  1. BORTEZOMIB. [Suspect]
     Active Substance: BORTEZOMIB
     Indication: PLASMA CELL MYELOMA RECURRENT
     Dosage: UNK
     Route: 065

REACTIONS (2)
  - Infection [Fatal]
  - Treatment failure [Fatal]
